FAERS Safety Report 23647699 (Version 5)
Quarter: 2024Q2

REPORT INFORMATION
  Report Type: Spontaneous
  Country: JP (occurrence: JP)
  Receive Date: 20240319
  Receipt Date: 20240523
  Transmission Date: 20240716
  Serious: Yes (Death, Other)
  Sender: FDA-Public Use
  Company Number: JP-AstraZeneca-CH-00586298A

PATIENT
  Age: 82 Year
  Sex: Female

DRUGS (15)
  1. ULTOMIRIS [Suspect]
     Active Substance: RAVULIZUMAB-CWVZ
     Indication: Neuromyelitis optica spectrum disorder
     Dosage: 2400 MILLIGRAM
     Route: 042
     Dates: start: 20231206
  2. ULTOMIRIS [Suspect]
     Active Substance: RAVULIZUMAB-CWVZ
     Dosage: 3000 MILLIGRAM
     Route: 042
     Dates: start: 20231220, end: 20240214
  3. DENOSUMAB [Concomitant]
     Active Substance: DENOSUMAB
     Indication: Product used for unknown indication
     Dosage: 60 MILLIGRAM, EVERY 6 MONTHS (JUN.DEC)
     Route: 058
  4. PREDONINE [Concomitant]
     Active Substance: PREDNISOLONE
     Indication: Product used for unknown indication
     Dosage: 7 MILLIGRAM, QD (AFTER BREAKFAST)
     Route: 048
  5. NEXIUM [Concomitant]
     Active Substance: ESOMEPRAZOLE MAGNESIUM
     Indication: Product used for unknown indication
     Dosage: 10 MILLIGRAM, QD (AFTER BREAKFAST)
     Route: 048
  6. METHOTREXATE [Concomitant]
     Active Substance: METHOTREXATE
     Indication: Product used for unknown indication
     Dosage: 2 MILLIGRAM, QW
     Route: 048
  7. FOLIC ACID [Concomitant]
     Active Substance: FOLIC ACID
     Indication: Product used for unknown indication
     Dosage: 5 MILLIGRAM, QW (2 DAYS AFTER METHOTREXATE)
     Route: 048
  8. ELDECALCITOL [Concomitant]
     Active Substance: ELDECALCITOL
     Indication: Product used for unknown indication
     Dosage: 0.75 MICROGRAM, QD (AFTER BREAKFAST)
     Route: 048
  9. METHYLCOBALAMIN [Concomitant]
     Active Substance: METHYLCOBALAMIN
     Indication: Product used for unknown indication
     Dosage: 2 DOSAGE FORM, BID (AFTER BREAKFAST AND DINNER)
     Route: 048
  10. CELECOXIB [Concomitant]
     Active Substance: CELECOXIB
     Indication: Product used for unknown indication
     Dosage: 2 DOSAGE FORM, BID (AFTER BREAKFAST AND DINNER)
     Route: 048
  11. PRASUGREL HYDROCHLORIDE [Concomitant]
     Active Substance: PRASUGREL HYDROCHLORIDE
     Indication: Product used for unknown indication
     Dosage: 3.25 MILLIGRAM, QD (AFTER BREAKFAST)
     Route: 048
  12. ASPIRIN [Concomitant]
     Active Substance: ASPIRIN
     Indication: Product used for unknown indication
     Dosage: 100 MILLIGRAM, QD (AFTER BREAKFAST)
     Route: 048
  13. CRESTOR [Concomitant]
     Active Substance: ROSUVASTATIN CALCIUM
     Indication: Product used for unknown indication
     Dosage: 5 MILLIGRAM, QD (AFTER DINNER)
     Route: 048
  14. ZETIA [Concomitant]
     Active Substance: EZETIMIBE
     Indication: Product used for unknown indication
     Dosage: 10 MILLIGRAM, QD (AFTER DINNER)
     Route: 048
  15. LOXOPROFEN SODIUM [Concomitant]
     Active Substance: LOXOPROFEN SODIUM
     Indication: Product used for unknown indication
     Dosage: 100 MILLIGRAM, APPLIED TO SHOULDER HIP AND KNEE
     Route: 061

REACTIONS (3)
  - Aortic dissection [Fatal]
  - Cardio-respiratory arrest [Fatal]
  - Intra-abdominal haemorrhage [Fatal]

NARRATIVE: CASE EVENT DATE: 20240310
